FAERS Safety Report 16877574 (Version 1)
Quarter: 2019Q4

REPORT INFORMATION
  Report Type: Report from Study
  Country: CN (occurrence: CN)
  Receive Date: 20191002
  Receipt Date: 20191002
  Transmission Date: 20200122
  Serious: Yes (Hospitalization)
  Sender: FDA-Public Use
  Company Number: PHHO2019CN007045

PATIENT
  Age: 67 Year
  Sex: Female
  Weight: 62 kg

DRUGS (8)
  1. TRAMADOC [Concomitant]
     Active Substance: TRAMADOL HYDROCHLORIDE
     Indication: NEURITIS
     Dosage: QD
     Route: 002
     Dates: start: 20180930
  2. ASPIRIN. [Concomitant]
     Active Substance: ASPIRIN
     Indication: HYPERLIPIDAEMIA
     Dosage: QD
     Route: 002
     Dates: start: 20190401, end: 20190617
  3. BLINDED NO TREATMENT RECEIVED [Suspect]
     Active Substance: INVESTIGATIONAL PRODUCT
     Indication: BREAST CANCER METASTATIC
     Dosage: QD
     Route: 002
     Dates: start: 20190530
  4. ATORVASTATIN CALCIUM. [Concomitant]
     Active Substance: ATORVASTATIN CALCIUM
     Indication: HYPERLIPIDAEMIA
     Dosage: QD
     Route: 002
     Dates: start: 20161009, end: 20190617
  5. FENOFIBRATE. [Concomitant]
     Active Substance: FENOFIBRATE
     Indication: HYPERLIPIDAEMIA
     Dosage: QD
     Route: 002
     Dates: start: 20151216, end: 20190617
  6. AFINITOR [Suspect]
     Active Substance: EVEROLIMUS
     Indication: BREAST CANCER METASTATIC
     Dosage: QD
     Route: 002
     Dates: start: 20190530
  7. BLINDED PLACEBO [Suspect]
     Active Substance: INVESTIGATIONAL PRODUCT
     Indication: BREAST CANCER METASTATIC
     Dosage: QD
     Route: 002
     Dates: start: 20190530
  8. COMPARATOR EXEMESTANE [Suspect]
     Active Substance: EXEMESTANE
     Indication: BREAST CANCER METASTATIC
     Dosage: QD
     Route: 002
     Dates: start: 20190530

REACTIONS (1)
  - Pathological fracture [Not Recovered/Not Resolved]

NARRATIVE: CASE EVENT DATE: 20190618
